FAERS Safety Report 19736012 (Version 1)
Quarter: 2021Q3

REPORT INFORMATION
  Report Type: Spontaneous
  Country: ES (occurrence: ES)
  Receive Date: 20210823
  Receipt Date: 20210823
  Transmission Date: 20211014
  Serious: Yes (Hospitalization)
  Sender: FDA-Public Use
  Company Number: ES-MYLANLABS-2021M1053442

PATIENT
  Age: 84 Year
  Sex: Female

DRUGS (5)
  1. FENTANYL TRANSDERMAL SYSTEM [Suspect]
     Active Substance: FENTANYL
     Dosage: 100 MICROGRAM, QH (1 PARCHE/72H)
     Route: 062
     Dates: start: 20190417, end: 20200103
  2. ABSTRAL [Suspect]
     Active Substance: FENTANYL CITRATE
     Dosage: 300 MICROGRAM (ANTES DE LAS CURAS)
     Route: 060
     Dates: start: 20200128, end: 20201117
  3. FENTANYL TRANSDERMAL SYSTEM [Suspect]
     Active Substance: FENTANYL
     Dosage: 200 MICROGRAM, QH
     Route: 062
     Dates: start: 20200104, end: 20201010
  4. ABSTRAL [Suspect]
     Active Substance: FENTANYL CITRATE
     Indication: PROCEDURAL PAIN
     Dosage: 400 MICROGRAM, QOD (ANTES DE LAS CURAS QUE SON CADA 48 H)
     Route: 060
     Dates: start: 20201117, end: 20201214
  5. FENTANYL TRANSDERMAL SYSTEM [Suspect]
     Active Substance: FENTANYL
     Indication: VASCULAR PAIN
     Dosage: 300 MICROGRAM, QH (3 PARCHES/72 H)
     Route: 062
     Dates: start: 20201011, end: 20201214

REACTIONS (2)
  - Fall [Recovered/Resolved with Sequelae]
  - Hip fracture [Recovered/Resolved with Sequelae]

NARRATIVE: CASE EVENT DATE: 20201211
